FAERS Safety Report 19216806 (Version 1)
Quarter: 2021Q2

REPORT INFORMATION
  Report Type: Spontaneous
  Country: US (occurrence: US)
  Receive Date: 20210504
  Receipt Date: 20210504
  Transmission Date: 20210717
  Serious: Yes (Death)
  Sender: FDA-Public Use
  Company Number: None

PATIENT
  Age: 37 Year
  Sex: Male

DRUGS (14)
  1. TACROLIMUS. [Concomitant]
     Active Substance: TACROLIMUS
  2. TOBRAMYCIN 300 [Suspect]
     Active Substance: TOBRAMYCIN
     Indication: PSEUDOMONAS INFECTION
     Dosage: 300MG BID NEB
     Dates: start: 20210225
  3. OMEPRAZOLE. [Concomitant]
     Active Substance: OMEPRAZOLE
  4. ZOLPIDEM [Concomitant]
     Active Substance: ZOLPIDEM TARTRATE
  5. VALGANCICLOV [Concomitant]
  6. MUCINEX [Concomitant]
     Active Substance: GUAIFENESIN
  7. QUETIAPINE. [Concomitant]
     Active Substance: QUETIAPINE
  8. PRASVASTATIN [Concomitant]
  9. RENTAL [Concomitant]
  10. POSACONAZOLE [Concomitant]
     Active Substance: POSACONAZOLE
  11. ALENDRONATE [Concomitant]
     Active Substance: ALENDRONATE SODIUM
  12. MYCOPHENOLAT [Concomitant]
     Active Substance: MYCOPHENOLATE MOFETIL
  13. SUCRALFATE. [Concomitant]
     Active Substance: SUCRALFATE
  14. SMZ/TMP [Concomitant]
     Active Substance: SULFAMETHOXAZOLE\TRIMETHOPRIM

REACTIONS (1)
  - Death [None]

NARRATIVE: CASE EVENT DATE: 20210411
